FAERS Safety Report 14364451 (Version 10)
Quarter: 2019Q1

REPORT INFORMATION
  Report Type: Spontaneous
  Country: DK (occurrence: DK)
  Receive Date: 20180108
  Receipt Date: 20190123
  Transmission Date: 20190417
  Serious: Yes (Other)
  Sender: FDA-Public Use
  Company Number: DK-MYLANLABS-2018M1001800

PATIENT
  Age: 30 Year
  Sex: Female

DRUGS (15)
  1. CISPLATIN. [Suspect]
     Active Substance: CISPLATIN
     Dosage: 50 MILLIGRAM/SQ. METER (50 MG/M2, DAY 1-2 )
     Route: 042
  2. CALCIUM FOLINATE [Concomitant]
     Active Substance: LEUCOVORIN CALCIUM
     Indication: DRUG TOXICITY PROPHYLAXIS
     Dosage: 1 ML, UNK, 4 WEEK
     Route: 048
  3. ETOPOSIDE. [Suspect]
     Active Substance: ETOPOSIDE
     Dosage: 162 MG/M2, UNK
     Route: 042
  4. CISPLATIN. [Suspect]
     Active Substance: CISPLATIN
     Dosage: 50 MG/M2, Q3W, DAY 1-2
     Route: 042
     Dates: start: 2010
  5. ETOPOSIDE. [Suspect]
     Active Substance: ETOPOSIDE
     Indication: GESTATIONAL TROPHOBLASTIC TUMOUR
     Dosage: 100 MG/M2, QD, ADMINISTERED ON DAYS 15 3 WEEKS CYCLE, Q3WK
     Route: 042
  6. ETOPOSIDE. [Suspect]
     Active Substance: ETOPOSIDE
     Dosage: 165 MG/M2, DAY 1-3, 3 WEEK INTERVAL
     Route: 042
     Dates: start: 2010
  7. CISPLATIN. [Suspect]
     Active Substance: CISPLATIN
     Indication: GESTATIONAL TROPHOBLASTIC TUMOUR
     Dosage: 20 MG/M2, Q3W, ON DAYS 1-5, REPEATED EVERY 3 WEEKS
     Route: 042
  8. ETOPOSIDE. [Suspect]
     Active Substance: ETOPOSIDE
     Dosage: 165 MG/M2, UNK, DAY 1-3 (3 WEEK INTERVAL)
     Route: 042
     Dates: start: 20100101
  9. METHOTREXATE. [Suspect]
     Active Substance: METHOTREXATE
     Dosage: 2.5 MG, QD, REPEATED EVERY 3 WEEKS (ALTERNATIVELY EVERY 3 WEEKS)
     Route: 048
  10. METHOTREXATE. [Suspect]
     Active Substance: METHOTREXATE
     Indication: GESTATIONAL TROPHOBLASTIC TUMOUR
     Dosage: 10 MG, QD (2.5 MG, QID FOR 5 DAYS)
     Route: 048
  11. BLEOMYCIN [Suspect]
     Active Substance: BLEOMYCIN SULFATE
     Indication: GESTATIONAL TROPHOBLASTIC TUMOUR
     Dosage: 30000 IU, Q3W, DAY 2,9, AND16, REPEATED EVERY 3 WEEKS
     Route: 042
  12. DACTINOMYCIN [Concomitant]
     Active Substance: DACTINOMYCIN
     Indication: PRODUCT USED FOR UNKNOWN INDICATION
     Dosage: 0.5 MG, UNK, FOR 5 DAYS(SCHEDULE REPEATED EVERY 4 WEEKS (ALTERNATIVELY EVERY 3 WEEKS)
     Route: 042
  13. BLEOMYCIN [Suspect]
     Active Substance: BLEOMYCIN SULFATE
     Dosage: 30000 INTERNATIONAL UNIT, QW (DAY 2,9, AND 16, REPEATED EVERY 3 WEEKS)
     Route: 042
  14. CISPLATIN. [Suspect]
     Active Substance: CISPLATIN
     Dosage: 200 MILLIGRAM/SQ. METER, QD(20 MG/M2, Q3WK, DAY 1-5 )
     Route: 042
  15. METHOTREXATE. [Suspect]
     Active Substance: METHOTREXATE
     Dosage: 2.5 MG, EVERY 4 WEEKS (ALTERNATIVELY EVERY 3 WEEKS)
     Route: 048

REACTIONS (4)
  - Product use in unapproved indication [Unknown]
  - Respiratory symptom [Unknown]
  - Drug resistance [Unknown]
  - Anaemia [Unknown]
